FAERS Safety Report 8290228-5 (Version None)
Quarter: 2012Q1

REPORT INFORMATION
  Report Type: 
  Country: None (occurrence: None)
  Receive Date: 20120316
  Receipt Date: 20090309
  Transmission Date: 20120608
  Serious: Yes (Other)
  Sender: FDA-Public Use
  Company Number: PHEH2009US02443

PATIENT
  Sex: Female

DRUGS (4)
  1. TEKTURNA [Suspect]
     Dosage: 150, QD
  2. BETA BLOCKING AGENTS (NO INGREDIENTS/SUBSTANCES) [Concomitant]
  3. DIURETICS (NO INGREDIENTS/SUBSTANCES) [Concomitant]
  4. CALCIUM CHANNEL BLOCKERS (NO INGREDIENTS/SUBSTANCES) [Concomitant]

REACTIONS (1)
  - SWOLLEN TONGUE [None]
